FAERS Safety Report 6439787-5 (Version None)
Quarter: 2009Q4

REPORT INFORMATION
  Report Type: 
  Country: None (occurrence: None)
  Receive Date: 20091113
  Receipt Date: 20090220
  Transmission Date: 20100525
  Serious: Yes (Other)
  Sender: FDA-Public Use
  Company Number: US-MERCK-0902USA03768

PATIENT
  Age: 47 Year
  Sex: Male

DRUGS (3)
  1. PEPCID [Suspect]
     Indication: CHOLECYSTITIS ACUTE
     Route: 048
  2. MORPHINE [Concomitant]
     Route: 065
  3. CEFOXITIN [Concomitant]
     Route: 065

REACTIONS (1)
  - HEPATITIS ACUTE [None]
